FAERS Safety Report 9178559 (Version 2)
Quarter: 2013Q2

REPORT INFORMATION
  Report Type: Spontaneous
  Country: US (occurrence: US)
  Receive Date: 20130321
  Receipt Date: 20130404
  Transmission Date: 20140414
  Serious: Yes (Hospitalization)
  Sender: FDA-Public Use
  Company Number: US-GILEAD-2013-0072088

PATIENT
  Age: 59 Year
  Sex: 0

DRUGS (8)
  1. LETAIRIS [Suspect]
     Indication: PULMONARY HYPERTENSION
     Dosage: 10 MG, QD
     Dates: start: 20120228
  2. COUMADIN                           /00014802/ [Concomitant]
  3. DUONEB [Concomitant]
  4. PANCREASE                          /00014701/ [Concomitant]
  5. PRILOSEC                           /00661201/ [Concomitant]
  6. ALBUTEROL                          /00139501/ [Concomitant]
  7. DIGOXIN [Concomitant]
  8. PREDNISONE [Concomitant]

REACTIONS (1)
  - Dyspnoea [Not Recovered/Not Resolved]
